FAERS Safety Report 9470776 (Version 2)
Quarter: 2013Q3

REPORT INFORMATION
  Report Type: Spontaneous
  Country: FR (occurrence: FR)
  Receive Date: 20130822
  Receipt Date: 20130906
  Transmission Date: 20140515
  Serious: Yes (Life-Threatening, Hospitalization, Other)
  Sender: FDA-Public Use
  Company Number: FR-ASTRAZENECA-2013SE64307

PATIENT
  Age: 26694 Day
  Sex: Female

DRUGS (11)
  1. INEXIUM [Suspect]
     Indication: GASTROOESOPHAGEAL REFLUX DISEASE
     Route: 048
  2. INEXIUM [Suspect]
     Indication: GASTROOESOPHAGEAL REFLUX DISEASE
     Route: 048
  3. DEPAKOTE [Interacting]
     Indication: BIPOLAR DISORDER
     Route: 048
  4. DOLIPRANE [Suspect]
     Indication: PAIN
     Route: 048
     Dates: start: 201302
  5. PREVISCAN [Interacting]
     Indication: PHLEBITIS
     Route: 048
     Dates: start: 201302, end: 20130608
  6. PREVISCAN [Interacting]
     Indication: PHLEBITIS
     Route: 048
  7. ZYPREXA [Suspect]
     Indication: BIPOLAR DISORDER
     Route: 048
  8. LUDIOMIL [Suspect]
     Indication: DEPRESSION
     Route: 048
  9. KARDEGIC [Suspect]
     Indication: VASCULAR DEMENTIA
     Route: 048
     Dates: end: 20130608
  10. CERIS [Suspect]
     Indication: URINARY INCONTINENCE
     Route: 048
  11. COZAAR [Suspect]
     Indication: HYPERTENSION
     Route: 048

REACTIONS (8)
  - Drug interaction [Unknown]
  - Shock haemorrhagic [Recovered/Resolved with Sequelae]
  - Anaemia [Not Recovered/Not Resolved]
  - International normalised ratio increased [Recovered/Resolved]
  - Haematemesis [Recovered/Resolved]
  - Lower limb fracture [Unknown]
  - Phlebitis [Unknown]
  - Oesophageal ulcer [Recovered/Resolved]
